FAERS Safety Report 21011028 (Version 1)
Quarter: 2022Q2

REPORT INFORMATION
  Report Type: Spontaneous
  Country: CA (occurrence: CA)
  Receive Date: 20220627
  Receipt Date: 20220627
  Transmission Date: 20220721
  Serious: Yes (Life-Threatening)
  Sender: FDA-Public Use
  Company Number: CA-PFIZER INC-202200889202

PATIENT
  Age: 16 Year
  Sex: Female

DRUGS (1)
  1. CIPROFLOXACIN [Suspect]
     Active Substance: CIPROFLOXACIN
     Indication: Pyelonephritis
     Dosage: 400 MG, 2X/DAY (EVERY 12 HOURS)

REACTIONS (9)
  - Anxiety [Recovering/Resolving]
  - Documented hypersensitivity to administered product [Recovering/Resolving]
  - Headache [Recovering/Resolving]
  - Infusion site pruritus [Recovering/Resolving]
  - Infusion site rash [Recovering/Resolving]
  - Lip swelling [Recovering/Resolving]
  - Nausea [Recovering/Resolving]
  - Paraesthesia oral [Recovering/Resolving]
  - Swollen tongue [Recovering/Resolving]
